FAERS Safety Report 8511180-0 (Version None)
Quarter: 2012Q2

REPORT INFORMATION
  Report Type: 
  Country: None (occurrence: None)
  Receive Date: 20120629
  Receipt Date: 20120619
  Transmission Date: 20120825
  Serious: Yes (Other)
  Sender: FDA-Public Use
  Company Number: 2012SP034470

PATIENT
  Age: 34 Year
  Sex: Female

DRUGS (2)
  1. STRESAM (ETIFOXINE) [Suspect]
     Indication: PRODUCT USED FOR UNKNOWN INDICATION
     Dosage: 1 DF;TID;PO
     Route: 048
     Dates: start: 20120503, end: 20120524
  2. DESOGESTREL AND ETHINYL ESTRADIOL [Suspect]
     Indication: PRODUCT USED FOR UNKNOWN INDICATION
     Dosage: 1 DF;QD;PO ; 1 DF;QD;PO
     Route: 048
     Dates: start: 20090101

REACTIONS (2)
  - ABNORMAL WITHDRAWAL BLEEDING [None]
  - DRUG INTERACTION [None]
